FAERS Safety Report 17347036 (Version 1)
Quarter: 2020Q1

REPORT INFORMATION
  Report Type: Spontaneous
  Country: FR (occurrence: FR)
  Receive Date: 20200130
  Receipt Date: 20200130
  Transmission Date: 20200409
  Serious: Yes (Other)
  Sender: FDA-Public Use
  Company Number: FR-ELI_LILLY_AND_COMPANY-FR202001010113

PATIENT
  Age: 15 Year
  Sex: Male
  Weight: 66 kg

DRUGS (2)
  1. CHLORURE DE POTASSIUM [Concomitant]
     Active Substance: POTASSIUM CHLORIDE
     Indication: PRODUCT USED FOR UNKNOWN INDICATION
     Dosage: UNK, UNKNOWN
     Route: 065
  2. HUMALOG [Suspect]
     Active Substance: INSULIN LISPRO
     Indication: PRODUCT ADMINISTRATION ERROR
     Dosage: 1 INTERNATIONAL UNIT, UNKNOWN
     Route: 041
     Dates: start: 20200103, end: 20200103

REACTIONS (3)
  - Accidental overdose [Recovered/Resolved]
  - Hypoglycaemia [Recovered/Resolved]
  - Product administration error [Recovered/Resolved]

NARRATIVE: CASE EVENT DATE: 20200103
